FAERS Safety Report 8194174-7 (Version None)
Quarter: 2012Q1

REPORT INFORMATION
  Report Type: 
  Country: None (occurrence: None)
  Receive Date: 20120308
  Receipt Date: 20120227
  Transmission Date: 20120608
  Serious: Yes (Hospitalization, Other)
  Sender: FDA-Public Use
  Company Number: US-ELI_LILLY_AND_COMPANY-US201107001064

PATIENT
  Sex: Female

DRUGS (7)
  1. FORTEO [Suspect]
     Indication: OSTEOPOROSIS
     Dosage: 20 UG, QD
     Dates: start: 20110301
  2. VITAMIN D [Concomitant]
  3. IRON [Concomitant]
  4. EYE DROPS [Concomitant]
  5. FORTEO [Suspect]
     Dosage: 20 UG, QD
  6. FORTEO [Suspect]
     Dosage: 20 UG, QD
  7. CALCIUM [Concomitant]

REACTIONS (6)
  - FALL [None]
  - ANKLE FRACTURE [None]
  - NASOPHARYNGITIS [None]
  - DRUG DOSE OMISSION [None]
  - PNEUMONIA [None]
  - INCORRECT DOSE ADMINISTERED BY DEVICE [None]
